FAERS Safety Report 9746528 (Version 5)
Quarter: 2014Q3

REPORT INFORMATION
  Report Type: Spontaneous
  Country: US (occurrence: None)
  Receive Date: 20131205
  Receipt Date: 20140807
  Transmission Date: 20150326
  Serious: Yes (Life-Threatening, Hospitalization, Other)
  Sender: FDA-Public Use
  Company Number: AUR-APL-2013-09920

PATIENT
  Age: 60 Year
  Sex: Female
  Weight: 111.1 kg

DRUGS (16)
  1. ATENOLOL. [Suspect]
     Active Substance: ATENOLOL
     Indication: ANGINA PECTORIS
     Route: 048
     Dates: start: 2010
  2. LISINOPRIL. [Suspect]
     Active Substance: LISINOPRIL
     Indication: BLOOD PRESSURE
     Route: 048
     Dates: start: 2013, end: 2013
  3. ALLOPURINOL. [Concomitant]
     Active Substance: ALLOPURINOL
  4. LOVASTATIN (LOVASTATIN) [Concomitant]
     Active Substance: LOVASTATIN
  5. GEODON [Concomitant]
     Active Substance: ZIPRASIDONE HYDROCHLORIDE\ZIPRASIDONE MESYLATE
  6. LAMICTAL [Concomitant]
     Active Substance: LAMOTRIGINE
  7. JANUVIA [Concomitant]
     Active Substance: SITAGLIPTIN PHOSPHATE
  8. XANAX [Concomitant]
     Active Substance: ALPRAZOLAM
  9. FUROSEMIDE (FUROSEMIDE) [Concomitant]
     Active Substance: FUROSEMIDE
  10. SEROQUEL XR [Suspect]
     Active Substance: QUETIAPINE FUMARATE
     Indication: BIPOLAR DISORDER
     Route: 048
     Dates: start: 2007, end: 20131104
  11. SEROQUEL [Suspect]
     Active Substance: QUETIAPINE FUMARATE
     Indication: SCHIZOAFFECTIVE DISORDER
     Dates: start: 2007, end: 20131104
  12. MACROGOL (MACROGOL) [Concomitant]
  13. SEROQUEL XR [Suspect]
     Active Substance: QUETIAPINE FUMARATE
     Indication: SCHIZOAFFECTIVE DISORDER
     Route: 048
     Dates: start: 2007, end: 20131104
  14. SEROQUEL [Suspect]
     Active Substance: QUETIAPINE FUMARATE
     Indication: BIPOLAR DISORDER
     Dates: start: 2007, end: 20131104
  15. VICTOZA [Concomitant]
     Active Substance: LIRAGLUTIDE
  16. GLIPIZIDE (GLIPIZIDE) [Concomitant]
     Active Substance: GLIPIZIDE

REACTIONS (32)
  - Homicidal ideation [None]
  - Increased appetite [None]
  - Weight decreased [None]
  - Suicidal ideation [None]
  - Memory impairment [None]
  - Pharyngeal oedema [None]
  - Ill-defined disorder [None]
  - Type 2 diabetes mellitus [None]
  - Choking [None]
  - Anxiety [None]
  - Hyperphagia [None]
  - Weight increased [None]
  - Hypotension [None]
  - Drug dose omission [None]
  - Renal failure chronic [None]
  - Dry mouth [None]
  - Vomiting [None]
  - Hangover [None]
  - Intervertebral disc disorder [None]
  - Somnolence [None]
  - Aptyalism [None]
  - Angina pectoris [None]
  - Renal disorder [None]
  - Swollen tongue [None]
  - Polydipsia [None]
  - Hypertension [None]
  - Blood glucose increased [None]
  - Blood creatinine increased [None]
  - Therapy cessation [None]
  - Dysphagia [None]
  - Stress [None]
  - Osteoarthritis [None]

NARRATIVE: CASE EVENT DATE: 2007
